FAERS Safety Report 6410956-3 (Version None)
Quarter: 2009Q4

REPORT INFORMATION
  Report Type: 
  Country: None (occurrence: None)
  Receive Date: 20091022
  Receipt Date: 20091013
  Transmission Date: 20100525
  Serious: Yes (Hospitalization)
  Sender: FDA-Public Use
  Company Number: JP-NOVOPROD-291380

PATIENT
  Sex: Female
  Weight: 80 kg

DRUGS (5)
  1. LEVEMIR CHU PENFILL [Suspect]
     Indication: TYPE 2 DIABETES MELLITUS
     Dosage: 13 IU, QD
     Route: 058
     Dates: start: 20080910
  2. NOVORAPID CHU [Concomitant]
     Indication: DIABETES MELLITUS
     Dosage: 29 IU, UNK
     Route: 058
     Dates: start: 20061101
  3. AMLODIPINE [Concomitant]
     Indication: HYPERTENSION
     Dosage: 5 MG, QD
     Route: 048
     Dates: start: 20070101
  4. BLOPRESS [Concomitant]
     Indication: HYPERTENSION
     Dosage: 12 MG, QD
     Route: 048
     Dates: start: 20080404
  5. PURSENNID                          /00571901/ [Concomitant]
     Indication: CONSTIPATION
     Dosage: 36 MG, QD
     Route: 048
     Dates: start: 20080210

REACTIONS (1)
  - RENAL CANCER [None]
